FAERS Safety Report 9242146 (Version 1)
Quarter: 2013Q2

REPORT INFORMATION
  Report Type: Spontaneous
  Country: CA (occurrence: CA)
  Receive Date: 20130419
  Receipt Date: 20130419
  Transmission Date: 20140414
  Serious: Yes (Hospitalization)
  Sender: FDA-Public Use
  Company Number: CA-TEVA-399414USA

PATIENT
  Age: 93 Year
  Sex: Female
  Weight: 51 kg

DRUGS (21)
  1. NOVO-AMLODIPINE [Suspect]
     Dosage: 25 MILLIGRAM DAILY;
     Route: 048
  2. ALDACTONE [Concomitant]
  3. ARIMIDEX [Concomitant]
  4. ATIVAN [Concomitant]
  5. BENADRYL [Concomitant]
  6. CATAPRES [Concomitant]
  7. CELESTODERM-V [Concomitant]
  8. COUMADIN [Concomitant]
  9. FRAGMIN [Concomitant]
     Route: 042
  10. GLAXAL BASE [Concomitant]
     Dosage: LOTION SPF 15
  11. INFLUENZA VACCINE [Concomitant]
  12. K-DUR [Concomitant]
     Dosage: TABLET (EXTENDEDRELEASE)
  13. LASIX [Concomitant]
  14. LEVAQUIN [Concomitant]
  15. NADOLOL [Concomitant]
  16. REACTINE [Concomitant]
  17. RISPERDAL [Concomitant]
  18. TYLENOL [Concomitant]
  19. VITALUX AREDS [Concomitant]
  20. VITAMIN D [Concomitant]
  21. XALATAN [Concomitant]
     Dosage: SOLUTION OPHTHALMIC
     Route: 047

REACTIONS (1)
  - Dermatitis [Recovered/Resolved]
